FAERS Safety Report 9837598 (Version 1)
Quarter: 2014Q1

REPORT INFORMATION
  Report Type: Spontaneous
  Country: FI (occurrence: FI)
  Receive Date: 20140123
  Receipt Date: 20140123
  Transmission Date: 20141002
  Serious: Yes (Hospitalization)
  Sender: FDA-Public Use
  Company Number: FI-SA-2014SA005312

PATIENT
  Age: 85 Year
  Sex: Male

DRUGS (13)
  1. PLAVIX [Suspect]
     Indication: AORTIC VALVE DISEASE
     Route: 048
     Dates: start: 201308, end: 20131227
  2. CLOPIDOGREL BISULFATE [Suspect]
     Indication: AORTIC VALVE DISEASE
     Route: 048
     Dates: start: 201308, end: 20131227
  3. KALEORID [Concomitant]
     Route: 048
  4. LEVOLAC [Concomitant]
     Dosage: LACTULOSE 670 MG/ML ORAL SOLUTION
     Route: 048
  5. SOMAC [Concomitant]
     Dosage: PANTOPRAZOL 40 MG GASTRO-RESISTANT TABLET
     Route: 048
  6. TIOTROPIUM BROMIDE [Concomitant]
     Dosage: TIOTROPIUM 2.5 G INHALATION LIQUID?2INHALATIONS ONCE PER DAY
     Route: 045
  7. SYMBICORT TURBUHALER [Concomitant]
     Dosage: BUDESONIDE;FORMOTEROL INHALATION POWDER?1 INHALATION 2 TIMES PER DAY
     Route: 045
  8. JANUVIA [Concomitant]
     Dosage: SITAGLIPTIN 50 MG FILM-COATED TABLET
     Route: 048
  9. APURIN [Concomitant]
     Dosage: ALLOPURINOL 100 MG TABLET
     Route: 048
  10. PRIMASPAN [Concomitant]
     Dosage: ACETYLSALICYLIC ACID 100 MG TABLET
     Route: 048
  11. CARDACE [Concomitant]
     Dosage: RAMIPRIL 2.5 MG TABLET
     Route: 048
  12. EMCONCOR CHF [Concomitant]
     Dosage: BISOPROLOL FUMARATE 2.5 MG TABLET
     Route: 048
  13. FURESIS [Concomitant]
     Dosage: FUROSEMIDE 40 MG TABLET
     Route: 048

REACTIONS (9)
  - Oral pain [Not Recovered/Not Resolved]
  - Oropharyngeal pain [Not Recovered/Not Resolved]
  - Rash [Not Recovered/Not Resolved]
  - Erythema [Not Recovered/Not Resolved]
  - Pruritus [Not Recovered/Not Resolved]
  - Pain [Not Recovered/Not Resolved]
  - Skin ulcer [Not Recovered/Not Resolved]
  - Swelling face [Not Recovered/Not Resolved]
  - Drug eruption [Not Recovered/Not Resolved]
